FAERS Safety Report 10067004 (Version 1)
Quarter: 2014Q2

REPORT INFORMATION
  Report Type: Spontaneous
  Country: US (occurrence: US)
  Receive Date: 20140409
  Receipt Date: 20140409
  Transmission Date: 20141212
  Serious: No
  Sender: FDA-Public Use
  Company Number: US-009507513-1404USA003146

PATIENT
  Age: 37 Year
  Sex: Male

DRUGS (4)
  1. ISENTRESS [Suspect]
     Indication: HIV INFECTION
     Dosage: 400 MG, TWICE A DAY
     Route: 048
     Dates: start: 201104
  2. TRUVADA [Concomitant]
     Dosage: UNK
  3. BACTRIM [Concomitant]
     Dosage: UNK
  4. ZITHROMAX [Concomitant]
     Dosage: UNK

REACTIONS (1)
  - CD4 lymphocytes decreased [Not Recovered/Not Resolved]
